FAERS Safety Report 5041806-8 (Version None)
Quarter: 2006Q2

REPORT INFORMATION
  Report Type: 
  Country: None (occurrence: None)
  Receive Date: 20060630
  Receipt Date: 20060627
  Transmission Date: 20061013
  Serious: Yes (Death, Life-Threatening)
  Sender: FDA-Public Use
  Company Number: 200612297BWH

PATIENT
  Age: 82 Year
  Sex: Male
  Weight: 83.9154 kg

DRUGS (9)
  1. TRASYLOL [Suspect]
     Indication: CORONARY ARTERY SURGERY
     Dosage: 200 ML, ONCE, INTRAVENOUS
     Route: 042
     Dates: start: 20051218
  2. TRASYLOL [Suspect]
     Indication: MITRAL VALVE REPAIR
     Dosage: 200 ML, ONCE, INTRAVENOUS
     Route: 042
     Dates: start: 20051218
  3. TRASYLOL [Suspect]
     Indication: TRICUSPID VALVE REPAIR
     Dosage: 200 ML, ONCE, INTRAVENOUS
     Route: 042
     Dates: start: 20051218
  4. HEPARIN [Concomitant]
  5. PROTAMINE SULFATE [Concomitant]
  6. MANNITOL [Concomitant]
  7. BICARBONATE [Concomitant]
  8. SOLU-MEDROL [Concomitant]
  9. I.V. SOLUTION NOS [Concomitant]

REACTIONS (4)
  - BLOOD PRESSURE DECREASED [None]
  - DIALYSIS [None]
  - POST PROCEDURAL COMPLICATION [None]
  - RENAL FAILURE [None]
